FAERS Safety Report 8127546-7 (Version None)
Quarter: 2012Q1

REPORT INFORMATION
  Report Type: 
  Country: None (occurrence: None)
  Receive Date: 20120210
  Receipt Date: 20120208
  Transmission Date: 20120608
  Serious: No
  Sender: FDA-Public Use
  Company Number: US-BAYER-2012-013208

PATIENT
  Sex: Female

DRUGS (1)
  1. AVELOX [Suspect]
     Dosage: 400MG
     Route: 048

REACTIONS (2)
  - SWOLLEN TONGUE [None]
  - OEDEMA PERIPHERAL [None]
